FAERS Safety Report 6537226-7 (Version None)
Quarter: 2010Q1

REPORT INFORMATION
  Report Type: 
  Country: None (occurrence: None)
  Receive Date: 20100114
  Receipt Date: 20100107
  Transmission Date: 20100710
  Serious: Yes (Hospitalization)
  Sender: FDA-Public Use
  Company Number: US-ROCHE-676551

PATIENT
  Sex: Female
  Weight: 60 kg

DRUGS (9)
  1. TOCILIZUMAB [Suspect]
     Indication: RHEUMATOID ARTHRITIS
     Dosage: LAST DOSE PRIOR TO SAE: 01 DEC 2009,
     Route: 042
     Dates: start: 20061128, end: 20091222
  2. PLACEBO [Suspect]
     Indication: RHEUMATOID ARTHRITIS
     Dosage: THE PATIENT WAS PREVIOUSLY ENROLLED IN WA17824 STUDY AND RECEIVED BLINDED TOCILIZUMAB.
     Route: 042
  3. PREDNISONE [Concomitant]
     Dates: start: 20090522
  4. SOMA [Concomitant]
     Dates: start: 20090301
  5. VERAPAMIL [Concomitant]
     Dates: start: 20050101
  6. ZYPREXA [Concomitant]
     Dates: start: 20060101
  7. NEXIUM [Concomitant]
     Dates: start: 20050101
  8. PREMARIN [Concomitant]
     Dates: start: 19980101
  9. GLUCOPHAGE [Concomitant]
     Dates: start: 20050101

REACTIONS (1)
  - COLITIS ULCERATIVE [None]
